FAERS Safety Report 5160836-9 (Version None)
Quarter: 2006Q4

REPORT INFORMATION
  Report Type: 
  Country: None (occurrence: None)
  Receive Date: 20061121
  Receipt Date: 20061109
  Transmission Date: 20070319
  Serious: Yes (Hospitalization)
  Sender: FDA-Public Use
  Company Number: POMP-10880

PATIENT
  Age: 16 Month
  Sex: Female

DRUGS (6)
  1. MYOZYME [Suspect]
     Indication: GLYCOGEN STORAGE DISEASE TYPE II
     Dosage: 20 MG/KG Q2WKS IV
     Route: 042
     Dates: start: 20060505
  2. MYOZYME [Suspect]
     Indication: GLYCOGEN STORAGE DISEASE TYPE II
     Dosage: 20 MG/KG 2WKS IV
     Route: 042
     Dates: start: 20051021, end: 20060401
  3. LASIX [Concomitant]
  4. ALDACTONE [Concomitant]
  5. DIGITALIS TAB [Concomitant]
  6. CAPOTEN [Concomitant]

REACTIONS (3)
  - ABDOMINAL INFECTION [None]
  - ACUTE PRERENAL FAILURE [None]
  - BLOOD URIC ACID INCREASED [None]
